FAERS Safety Report 11611426 (Version 1)
Quarter: 2015Q4

REPORT INFORMATION
  Report Type: Spontaneous
  Country: US (occurrence: US)
  Receive Date: 20151008
  Receipt Date: 20151008
  Transmission Date: 20160304
  Serious: No
  Sender: FDA-Public Use
  Company Number: US-BIOGENIDEC-2015BI135316

PATIENT
  Age: 64 Year
  Sex: Female

DRUGS (18)
  1. PROZAC [Concomitant]
     Active Substance: FLUOXETINE HYDROCHLORIDE
  2. OCUTABS VISION FORMULA [Concomitant]
  3. FERROUS SULFATE [Concomitant]
     Active Substance: FERROUS SULFATE\FERROUS SULFATE, DRIED
  4. PROBIOTIC DAILY [Concomitant]
  5. PROTONIX [Concomitant]
     Active Substance: PANTOPRAZOLE SODIUM
  6. FAMOTIDINE. [Concomitant]
     Active Substance: FAMOTIDINE
  7. CLONAZEPAM. [Concomitant]
     Active Substance: CLONAZEPAM
  8. BIOTIN [Concomitant]
     Active Substance: BIOTIN
  9. DIPHENHYDRAMINE HCI [Concomitant]
  10. ZYRTEC [Concomitant]
     Active Substance: CETIRIZINE HYDROCHLORIDE
  11. ASPIRIN 81 [Concomitant]
  12. TOPIRAMATE. [Concomitant]
     Active Substance: TOPIRAMATE
  13. NAPROXEN SODIUM. [Concomitant]
     Active Substance: NAPROXEN SODIUM
  14. TECFIDERA [Suspect]
     Active Substance: DIMETHYL FUMARATE
     Indication: MULTIPLE SCLEROSIS
     Route: 048
  15. MYRBETRIQ [Concomitant]
     Active Substance: MIRABEGRON
  16. COMPLEX B-100 [Concomitant]
  17. BACLOFEN. [Concomitant]
     Active Substance: BACLOFEN
  18. MELOXICAM. [Concomitant]
     Active Substance: MELOXICAM

REACTIONS (1)
  - Dry mouth [Not Recovered/Not Resolved]
